FAERS Safety Report 12599956 (Version 1)
Quarter: 2016Q3

REPORT INFORMATION
  Report Type: Report from Study
  Country: JP (occurrence: JP)
  Receive Date: 20160727
  Receipt Date: 20160727
  Transmission Date: 20161109
  Serious: Yes (Death)
  Sender: FDA-Public Use
  Company Number: JP-PFIZER INC-2016357309

PATIENT
  Age: 11 Year
  Sex: Female

DRUGS (5)
  1. CYTARABINE. [Concomitant]
     Active Substance: CYTARABINE
     Indication: ACUTE MYELOID LEUKAEMIA
  2. SULFAMETHOXAZOLE AND TRIMETHOPRIM [Concomitant]
     Active Substance: SULFAMETHOXAZOLE\TRIMETHOPRIM
     Indication: PROPHYLAXIS
  3. MITOXANTRONE HCL [Concomitant]
     Active Substance: MITOXANTRONE HYDROCHLORIDE
     Indication: ACUTE MYELOID LEUKAEMIA
  4. ETOPOSIDE. [Concomitant]
     Active Substance: ETOPOSIDE
     Indication: ACUTE MYELOID LEUKAEMIA
  5. VORICONAZOLE. [Suspect]
     Active Substance: VORICONAZOLE
     Indication: INFECTION PROPHYLAXIS
     Dosage: 10 MG/KG, DAILY
     Route: 048

REACTIONS (2)
  - Fungal infection [Fatal]
  - Drug ineffective [Fatal]
